FAERS Safety Report 7822636-8 (Version None)
Quarter: 2011Q4

REPORT INFORMATION
  Report Type: 
  Country: None (occurrence: None)
  Receive Date: 20111018
  Receipt Date: 20111013
  Transmission Date: 20120403
  Serious: Yes (Hospitalization, Other)
  Sender: FDA-Public Use
  Company Number: US-AMGEN-USASP2011053103

PATIENT
  Age: 74 Year
  Sex: Male

DRUGS (2)
  1. ENBREL [Suspect]
     Indication: PSORIASIS
  2. ENBREL [Suspect]
     Indication: PSORIATIC ARTHROPATHY
     Dosage: 50 MG, QWK
     Dates: start: 20040920, end: 20100901

REACTIONS (9)
  - DRUG INEFFECTIVE [None]
  - HYPERHIDROSIS [None]
  - ADRENAL GLAND CANCER METASTATIC [None]
  - LUNG NEOPLASM MALIGNANT [None]
  - SEPSIS [None]
  - PNEUMONIA [None]
  - ADRENAL CARCINOMA [None]
  - PSORIATIC ARTHROPATHY [None]
  - PSORIASIS [None]
